FAERS Safety Report 9745540 (Version 1)
Quarter: 2013Q4

REPORT INFORMATION
  Report Type: Report from Study
  Country: LB (occurrence: LB)
  Receive Date: 20131211
  Receipt Date: 20131211
  Transmission Date: 20140711
  Serious: Yes (Hospitalization, Disabling, Other)
  Sender: FDA-Public Use
  Company Number: LB-SA-2013SA126295

PATIENT
  Age: 59 Year
  Sex: Male

DRUGS (9)
  1. LANTUS SOLOSTAR [Suspect]
     Indication: PRODUCT USED FOR UNKNOWN INDICATION
     Route: 065
     Dates: start: 201306, end: 201311
  2. SOLOSTAR [Concomitant]
     Indication: DEVICE THERAPY
     Dates: start: 201306, end: 201311
  3. AMARYL [Concomitant]
  4. METFORMIN [Concomitant]
  5. BISOPROLOL [Concomitant]
  6. ATORVASTATIN [Concomitant]
  7. OMNIC [Concomitant]
  8. TRITACE [Concomitant]
  9. PREGABALIN [Concomitant]

REACTIONS (1)
  - Toe amputation [Recovered/Resolved with Sequelae]
